FAERS Safety Report 10221137 (Version 1)
Quarter: 2014Q2

REPORT INFORMATION
  Report Type: Spontaneous
  Country: US (occurrence: None)
  Receive Date: 20140604
  Receipt Date: 20140604
  Transmission Date: 20141212
  Serious: Yes (Hospitalization, Other)
  Sender: FDA-Public Use
  Company Number: 2014AP003168

PATIENT
  Age: 62 Year
  Sex: Male

DRUGS (13)
  1. TRAMADOL HYDROCHLORIDE (TRAMADOL) [Suspect]
     Indication: PAIN
     Route: 048
  2. TRAZODONE HYDROCHLORIDE (TRAZODONE) TABLET [Suspect]
     Indication: INSOMNIA
     Dosage: AT BEDTIME
     Route: 048
  3. BUPROPION HYDROCHLORIDE [Suspect]
     Indication: DEPRESSION
     Route: 048
  4. OXYCODONE HYDROCHLORIDE (OXYCODONE HYDROCHLORIDE) [Suspect]
     Indication: PAIN
     Route: 048
  5. HEPARIN (HEPARIN) [Concomitant]
  6. RANITIDINE (RANITIDINE) [Concomitant]
  7. DOCUSATE CALCIUM (DOCUSATE CALCIUM) [Concomitant]
  8. PARACETAMOL (PARACETAMOL) [Concomitant]
  9. PEG 3350 (PEG 3350) [Concomitant]
  10. CALCIUM (CALCIUM) [Concomitant]
  11. VITAMIN D (VITAMIN D) [Concomitant]
  12. THIAMINE (THIAMINE) [Concomitant]
  13. FOLIC ACID (FOLIC ACID) [Concomitant]

REACTIONS (3)
  - Serotonin syndrome [None]
  - Drug interaction [None]
  - Toxicity to various agents [None]
